FAERS Safety Report 24750403 (Version 3)
Quarter: 2025Q3

REPORT INFORMATION
  Report Type: Spontaneous
  Country: US (occurrence: US)
  Receive Date: 20241218
  Receipt Date: 20250706
  Transmission Date: 20251021
  Serious: No
  Sender: SANOFI AVENTIS
  Company Number: US-SA-2024SA372432

PATIENT
  Age: 24 Year
  Sex: Female

DRUGS (1)
  1. DUPIXENT [Suspect]
     Active Substance: DUPILUMAB
     Indication: Nasal polyps
     Dosage: 300 MG, QOW
     Route: 058

REACTIONS (9)
  - Head discomfort [Unknown]
  - Peripheral swelling [Unknown]
  - Withdrawal syndrome [Unknown]
  - Swelling [Unknown]
  - Dry skin [Unknown]
  - Rash erythematous [Unknown]
  - Product dose omission in error [Unknown]
  - Erythema [Unknown]
  - Arthralgia [Unknown]
